FAERS Safety Report 6479914-7 (Version None)
Quarter: 2009Q4

REPORT INFORMATION
  Report Type: 
  Country: None (occurrence: None)
  Receive Date: 20091208
  Receipt Date: 20091118
  Transmission Date: 20100525
  Serious: Yes (Hospitalization)
  Sender: FDA-Public Use
  Company Number: BR-SANOFI-AVENTIS-2009SA001363

PATIENT
  Age: 58 Year
  Sex: Female
  Weight: 75 kg

DRUGS (2)
  1. LANTUS [Suspect]
     Indication: DIABETES MELLITUS
     Dosage: 40 IU DAILY, 30 IU IN THE AFTERNOON PLUS 15 IU AT NIGHT
     Route: 058
  2. OPTIPEN [Suspect]
     Indication: DIABETES MELLITUS
     Route: 058

REACTIONS (10)
  - ABASIA [None]
  - ASTHENIA [None]
  - DIARRHOEA [None]
  - DRY MOUTH [None]
  - HYPERGLYCAEMIA [None]
  - MEDICATION ERROR [None]
  - OEDEMA PERIPHERAL [None]
  - PAIN IN EXTREMITY [None]
  - SKIN DISCOLOURATION [None]
  - THROMBOSIS [None]
